FAERS Safety Report 5065809-2 (Version None)
Quarter: 2006Q3

REPORT INFORMATION
  Report Type: 
  Country: None (occurrence: None)
  Receive Date: 20060725
  Receipt Date: 20060718
  Transmission Date: 20061208
  Serious: Yes (Other)
  Sender: FDA-Public Use
  Company Number: HQWYE100718JUL06

PATIENT
  Age: 58 Year
  Sex: Female

DRUGS (7)
  1. MYLOTARG [Suspect]
     Indication: ACUTE MYELOID LEUKAEMIA RECURRENT
     Dosage: SEE IMAGE
     Route: 041
     Dates: start: 20060512, end: 20060512
  2. MYLOTARG [Suspect]
     Indication: ACUTE MYELOID LEUKAEMIA RECURRENT
     Dosage: SEE IMAGE
     Route: 041
     Dates: start: 20060613, end: 20060613
  3. RIZE (CLOTIAZEPAM) [Concomitant]
  4. NITRAZEPAM [Concomitant]
  5. LEVOFLOXACIN [Concomitant]
  6. FAMOTIDINE [Concomitant]
  7. ITRACONAZOLE [Concomitant]

REACTIONS (5)
  - BLOOD LACTATE DEHYDROGENASE INCREASED [None]
  - CHILLS [None]
  - FEBRILE NEUTROPENIA [None]
  - FIBRIN DEGRADATION PRODUCTS INCREASED [None]
  - PLATELET COUNT DECREASED [None]
